FAERS Safety Report 5806095-2 (Version None)
Quarter: 2008Q3

REPORT INFORMATION
  Report Type: 
  Country: None (occurrence: None)
  Receive Date: 20080709
  Receipt Date: 20080709
  Transmission Date: 20090109
  Serious: Yes (Life-Threatening)
  Sender: FDA-Public Use
  Company Number: None

PATIENT
  Age: 60 Year
  Sex: Male
  Weight: 94 kg

DRUGS (1)
  1. INSULIN [Suspect]
     Dates: start: 19990810

REACTIONS (6)
  - ANXIETY [None]
  - FATIGUE [None]
  - HYPERHIDROSIS [None]
  - HYPOGLYCAEMIA [None]
  - LOSS OF CONSCIOUSNESS [None]
  - NAUSEA [None]
